FAERS Safety Report 19969649 (Version 3)
Quarter: 2021Q4

REPORT INFORMATION
  Report Type: Spontaneous
  Country: US (occurrence: US)
  Receive Date: 20211019
  Receipt Date: 20211111
  Transmission Date: 20220303
  Serious: No
  Sender: FDA-Public Use
  Company Number: US-GW PHARMA-202110USGW04946

PATIENT

DRUGS (2)
  1. EPIDIOLEX [Suspect]
     Active Substance: CANNABIDIOL
     Indication: Lennox-Gastaut syndrome
     Dosage: 450 MILLIGRAM, BID
     Route: 048
     Dates: start: 201902, end: 202107
  2. EPIDIOLEX [Suspect]
     Active Substance: CANNABIDIOL
     Dosage: 900 MILLIGRAM
     Route: 048
     Dates: start: 20210709

REACTIONS (5)
  - Fall [Unknown]
  - Contusion [Unknown]
  - Mood altered [Unknown]
  - Seizure [Not Recovered/Not Resolved]
  - Abnormal behaviour [Not Recovered/Not Resolved]

NARRATIVE: CASE EVENT DATE: 20210801
